FAERS Safety Report 11934066 (Version 1)
Quarter: 2016Q1

REPORT INFORMATION
  Report Type: Spontaneous
  Country: US (occurrence: None)
  Receive Date: 20160120
  Receipt Date: 20160120
  Transmission Date: 20160526
  Serious: No
  Sender: FDA-Public Use
  Company Number: None

PATIENT
  Age: 57 Year
  Sex: Female

DRUGS (7)
  1. FISH OIL [Concomitant]
     Active Substance: FISH OIL
  2. VITAMIN D3 [Concomitant]
     Active Substance: CHOLECALCIFEROL
  3. AFINITOR [Suspect]
     Active Substance: EVEROLIMUS
     Indication: NEOPLASM MALIGNANT
     Route: 048
     Dates: start: 20151224
  4. FASLODEX [Concomitant]
     Active Substance: FULVESTRANT
  5. GLUCOASMINE [Concomitant]
  6. EXEMESTATEN [Concomitant]
  7. CAC [Concomitant]

REACTIONS (2)
  - Stomatitis [None]
  - Drug dose omission [None]

NARRATIVE: CASE EVENT DATE: 201601
